FAERS Safety Report 6139352-3 (Version None)
Quarter: 2009Q2

REPORT INFORMATION
  Report Type: 
  Country: None (occurrence: None)
  Receive Date: 20090401
  Receipt Date: 20090323
  Transmission Date: 20091009
  Serious: Yes (Other)
  Sender: FDA-Public Use
  Company Number: US-ROCHE-613562

PATIENT
  Sex: Male
  Weight: 73.9 kg

DRUGS (3)
  1. CAPECITABINE [Suspect]
     Indication: MALIGNANT PERITONEAL NEOPLASM
     Route: 048
     Dates: start: 20070613, end: 20090128
  2. CAPECITABINE [Suspect]
     Route: 048
  3. AVASTIN [Concomitant]
     Indication: MALIGNANT PERITONEAL NEOPLASM
     Route: 042
     Dates: start: 20060329, end: 20090128

REACTIONS (1)
  - INTESTINAL OBSTRUCTION [None]
